FAERS Safety Report 6080690-0 (Version None)
Quarter: 2009Q1

REPORT INFORMATION
  Report Type: 
  Country: None (occurrence: None)
  Receive Date: 20090121
  Receipt Date: 20081105
  Transmission Date: 20090719
  Serious: Yes (Other)
  Sender: FDA-Public Use
  Company Number: US-WYE-H06730208

PATIENT
  Age: 63 Year
  Sex: Female

DRUGS (6)
  1. PREMPRO [Suspect]
  2. AMEN [Suspect]
  3. ESTRADERM [Concomitant]
  4. ESTRATEST H.S. [Suspect]
  5. PREMARIN [Suspect]
  6. PROVERA [Suspect]

REACTIONS (1)
  - BREAST CANCER [None]
